FAERS Safety Report 5285795-X (Version None)
Quarter: 2007Q1

REPORT INFORMATION
  Report Type: 
  Country: None (occurrence: None)
  Receive Date: 20070116
  Receipt Date: 20061213
  Transmission Date: 20070707
  Serious: No
  Sender: FDA-Public Use
  Company Number: 2006SP004391

PATIENT
  Sex: Male

DRUGS (5)
  1. LUNESTA [Suspect]
     Indication: INSOMNIA
     Dosage: 1 MG;QD;ORAL
     Route: 048
     Dates: start: 20060201, end: 20061001
  2. SIMVASTATIN [Suspect]
     Dosage: SEE IMAGE
     Dates: end: 20060701
  3. SIMVASTATIN [Suspect]
     Dosage: SEE IMAGE
     Dates: start: 20060701, end: 20061001
  4. SYNTHROID [Concomitant]
  5. CYMBALTA [Concomitant]

REACTIONS (2)
  - FLUSHING [None]
  - PARAESTHESIA [None]
